FAERS Safety Report 4865421-1 (Version None)
Quarter: 2005Q4

REPORT INFORMATION
  Report Type: 
  Country: None (occurrence: None)
  Receive Date: 20051223
  Receipt Date: 20051117
  Transmission Date: 20060501
  Serious: Yes (Death, Life-Threatening, Hospitalization)
  Sender: FDA-Public Use
  Company Number: JP-AVENTIS-200513425JP

PATIENT
  Age: 64 Year
  Sex: Male
  Weight: 67 kg

DRUGS (8)
  1. AMARYL [Suspect]
     Indication: DIABETES MELLITUS
     Route: 048
     Dates: end: 20051009
  2. BUFFERIN [Concomitant]
     Dosage: DOSE: 1TABLET
     Route: 048
  3. SIGMART [Concomitant]
     Dosage: DOSE: 3TABLETS
     Route: 048
  4. TERNELIN [Concomitant]
     Dosage: DOSE: 3TABLETS
     Route: 048
  5. TRICOR [Concomitant]
     Dosage: DOSE: 4CAPSULES
     Route: 048
  6. METLIGINE [Concomitant]
     Dosage: DOSE: 2TABLETS
     Route: 048
  7. DANTRIUM [Concomitant]
     Dosage: DOSE: 2CAPSULES
     Route: 048
  8. NITRODERM [Concomitant]
     Dosage: DOSE: 1SHEET
     Route: 003

REACTIONS (7)
  - ARRHYTHMIA [None]
  - CARDIAC ARREST [None]
  - CEREBRAL ATROPHY [None]
  - CEREBRAL HAEMORRHAGE [None]
  - HYPOGLYCAEMIA [None]
  - HYPOGLYCAEMIC ENCEPHALOPATHY [None]
  - RESPIRATORY ARREST [None]
